FAERS Safety Report 7006598-1 (Version None)
Quarter: 2010Q3

REPORT INFORMATION
  Report Type: 
  Country: None (occurrence: None)
  Receive Date: 20100921
  Receipt Date: 20100921
  Transmission Date: 20110219
  Serious: Yes (Other)
  Sender: FDA-Public Use
  Company Number: None

PATIENT
  Sex: Male
  Weight: 31.7518 kg

DRUGS (1)
  1. SINGULAIR [Suspect]
     Indication: ASTHMA
     Dosage: 5MG ONCE/DAY BUCCAL
     Route: 002
     Dates: start: 20100902, end: 20100912

REACTIONS (6)
  - ANHEDONIA [None]
  - ANXIETY [None]
  - FEAR [None]
  - HEADACHE [None]
  - HYPOPHAGIA [None]
  - WEIGHT DECREASED [None]
